FAERS Safety Report 6554986-X (Version None)
Quarter: 2010Q1

REPORT INFORMATION
  Report Type: 
  Country: None (occurrence: None)
  Receive Date: 20100126
  Receipt Date: 20100126
  Transmission Date: 20100710
  Serious: Yes (Hospitalization)
  Sender: FDA-Public Use
  Company Number: None

PATIENT
  Age: 84 Year
  Sex: Male

DRUGS (2)
  1. LOVENOX [Suspect]
     Indication: THROMBOSIS PROPHYLAXIS
     Dosage: 40 MG Q24H SQ
     Route: 058
     Dates: start: 20091005, end: 20091010
  2. ASPIRIN [Suspect]
     Indication: THROMBOSIS PROPHYLAXIS
     Dosage: 81 MG BID PO
     Route: 048
     Dates: start: 20090922, end: 20091010

REACTIONS (2)
  - ANAEMIA [None]
  - UPPER GASTROINTESTINAL HAEMORRHAGE [None]
